FAERS Safety Report 8352397-8 (Version None)
Quarter: 2012Q2

REPORT INFORMATION
  Report Type: 
  Country: None (occurrence: None)
  Receive Date: 20120509
  Receipt Date: 20120426
  Transmission Date: 20120825
  Serious: Yes (Other)
  Sender: FDA-Public Use
  Company Number: VAL_00755_2012

PATIENT
  Age: 66 Year
  Sex: Female
  Weight: 48 kg

DRUGS (4)
  1. ROCALTROL [Suspect]
     Indication: OSTEOPOROSIS
     Dosage: 0.25 UG, QD, ORAL
     Route: 048
     Dates: start: 20120201
  2. BLOOD-ACTIVATING TRADITIONAL CHINESE MEDICINE [Suspect]
     Indication: PRODUCT USED FOR UNKNOWN INDICATION
     Dosage: DF
     Dates: start: 20120101
  3. EVISTA [Concomitant]
  4. LIPITOR [Concomitant]

REACTIONS (5)
  - SWELLING [None]
  - CEREBRAL INFARCTION [None]
  - THERAPEUTIC RESPONSE UNEXPECTED [None]
  - HEART RATE DECREASED [None]
  - BREAST PAIN [None]
